APPROVED DRUG PRODUCT: DILANTIN-30
Active Ingredient: PHENYTOIN
Strength: 30MG/5ML
Dosage Form/Route: SUSPENSION;ORAL
Application: N008762 | Product #002
Applicant: VIATRIS SPECIALTY LLC
Approved: Approved Prior to Jan 1, 1982 | RLD: No | RS: No | Type: DISCN